FAERS Safety Report 21158271 (Version 1)
Quarter: 2022Q3

REPORT INFORMATION
  Report Type: Report from Study
  Country: US (occurrence: US)
  Receive Date: 20220801
  Receipt Date: 20220801
  Transmission Date: 20221027
  Serious: Yes (Hospitalization, Other)
  Sender: FDA-Public Use
  Company Number: US-JCAR017-FOL-001-1101002-20210420-0004SG

PATIENT
  Age: 59 Year
  Sex: Male
  Weight: 77 kg

DRUGS (17)
  1. CYCLOPHOSPHAMIDE [Suspect]
     Active Substance: CYCLOPHOSPHAMIDE
     Indication: Marginal zone lymphoma
     Dosage: FREQUENCY TEXT: ONCE?560 MG X ONCE
     Route: 042
     Dates: start: 20210303, end: 20210303
  2. CYCLOPHOSPHAMIDE [Suspect]
     Active Substance: CYCLOPHOSPHAMIDE
     Dosage: FREQUENCY TEXT: ONCE?560 MG X ONCE
     Route: 042
     Dates: start: 20210304, end: 20210304
  3. CYCLOPHOSPHAMIDE [Suspect]
     Active Substance: CYCLOPHOSPHAMIDE
     Dosage: FREQUENCY TEXT: ONCE?560 MG X ONCE
     Route: 042
     Dates: start: 20210305, end: 20210305
  4. FLUDARABINE [Suspect]
     Active Substance: FLUDARABINE PHOSPHATE
     Indication: Marginal zone lymphoma
     Dosage: FREQUENCY TEXT: ONCE?55 MG X ONCE
     Route: 042
     Dates: start: 20210303, end: 20210303
  5. FLUDARABINE [Suspect]
     Active Substance: FLUDARABINE PHOSPHATE
     Dosage: FREQUENCY TEXT: ONCE?55 MG X ONCE
     Route: 042
     Dates: start: 20210304, end: 20210304
  6. FLUDARABINE [Suspect]
     Active Substance: FLUDARABINE PHOSPHATE
     Dosage: FREQUENCY TEXT: ONCE?55 MG X ONCE
     Route: 042
     Dates: start: 20210305, end: 20210305
  7. EMLA [Concomitant]
     Active Substance: LIDOCAINE\PRILOCAINE
     Indication: Anaesthesia
     Dosage: FREQUENCY TEXT: PRN
     Route: 061
     Dates: start: 201907
  8. LOTREL (AMLODIPINE/BENAZEPRIL) [Concomitant]
     Indication: Hypertension
     Dosage: 1 DF= 5/20 MG X 1 X 1 DAYS
     Route: 048
     Dates: start: 201911
  9. BACTRIM [Concomitant]
     Active Substance: SULFAMETHOXAZOLE\TRIMETHOPRIM
     Indication: Infection prophylaxis
     Dosage: 1 DF= 800-160 MG X 3 X 1 WEEKS
     Route: 048
     Dates: start: 20210321, end: 20210922
  10. CHOLECALCIFEROL [Concomitant]
     Active Substance: CHOLECALCIFEROL
     Indication: Osteopenia
     Dosage: 1000 IU X 1 X 1 DAYS
     Route: 048
     Dates: start: 20210319
  11. DOCUSATE SODIUM [Concomitant]
     Active Substance: DOCUSATE SODIUM
     Indication: Constipation prophylaxis
     Dosage: 100 MG X 2 X 1 DAYS
     Route: 048
     Dates: start: 20210320
  12. LEVOFLOXACIN [Concomitant]
     Active Substance: LEVOFLOXACIN
     Indication: Neutropenia
     Dosage: 500 MG X 1 X 1 DAYS
     Route: 048
     Dates: start: 20210305
  13. LEVOFLOXACIN [Concomitant]
     Active Substance: LEVOFLOXACIN
     Dosage: 500 MG X 1 X 1 DAYS
     Route: 048
     Dates: start: 20210329, end: 20210406
  14. LORAZEPAM [Concomitant]
     Active Substance: LORAZEPAM
     Indication: Anxiety
     Dosage: 0.5 MG X 1 X 6 HOURS
     Route: 048
     Dates: start: 20210423
  15. LORAZEPAM [Concomitant]
     Active Substance: LORAZEPAM
     Indication: Tremor
  16. SENNA [Concomitant]
     Active Substance: SENNA LEAF\SENNOSIDES\SENNOSIDES A AND B
     Indication: Constipation prophylaxis
     Dosage: 8.6 MG X 1 X 1 DAYS
     Route: 048
     Dates: start: 20210320
  17. VALACYCLOVIR [Concomitant]
     Active Substance: VALACYCLOVIR HYDROCHLORIDE
     Indication: Prophylaxis
     Dosage: 500 MG X 2 X 1 DAYS
     Route: 048
     Dates: start: 20210305

REACTIONS (1)
  - Neurotoxicity [Recovered/Resolved]

NARRATIVE: CASE EVENT DATE: 20210412
